FAERS Safety Report 4715465-5 (Version None)
Quarter: 2005Q3

REPORT INFORMATION
  Report Type: 
  Country: None (occurrence: None)
  Receive Date: 20050713
  Receipt Date: 20050704
  Transmission Date: 20060218
  Serious: Yes (Death, Hospitalization)
  Sender: FDA-Public Use
  Company Number: 2005US000875

PATIENT
  Age: 64 Year
  Sex: Female

DRUGS (12)
  1. PROGRAF [Suspect]
     Indication: PROPHYLAXIS AGAINST TRANSPLANT REJECTION
     Dosage: 0.50 MG, BID, ORAL
     Route: 048
     Dates: start: 20041118, end: 20050530
  2. MYCOPHENOLATE MOFETIL (MYCOPHENOLATE MOFETIL) [Suspect]
     Indication: PROPHYLAXIS AGAINST TRANSPLANT REJECTION
     Dosage: 1000.00 MG, BID, ORAL
     Route: 048
     Dates: start: 20041104, end: 20050615
  3. PREDNISONE [Suspect]
     Indication: PROPHYLAXIS AGAINST TRANSPLANT REJECTION
     Dosage: 10.00 MG, UID/QD, ORAL
     Route: 048
     Dates: start: 20041117, end: 20050220
  4. SIMULECT [Suspect]
     Dosage: 20.00 MG, UID/QD, IV NOS
     Route: 042
     Dates: start: 20041116, end: 20041120
  5. SEPTRA [Concomitant]
  6. MYCELEX [Concomitant]
  7. ASPIRIN [Concomitant]
  8. NORVASC /DEN/ (AMLODIPINE BESILATE) [Concomitant]
  9. CLONIDINE [Concomitant]
  10. VALCYTE [Concomitant]
  11. PEPCID [Concomitant]
  12. MAGNESIUM OXIDE (MAGNESIUM OXIDE) [Concomitant]

REACTIONS (4)
  - PNEUMONIA [None]
  - RECTAL HAEMORRHAGE [None]
  - UROSEPSIS [None]
  - WOUND INFECTION [None]
